FAERS Safety Report 5254837-X (Version None)
Quarter: 2007Q1

REPORT INFORMATION
  Report Type: 
  Country: None (occurrence: None)
  Receive Date: 20070305
  Receipt Date: 20070220
  Transmission Date: 20070707
  Serious: Yes (Hospitalization)
  Sender: FDA-Public Use
  Company Number: US-ELI_LILLY_AND_COMPANY-US200701002766

PATIENT
  Age: 42 Year
  Sex: Male
  Weight: 86.167 kg

DRUGS (5)
  1. ZYPREXA [Suspect]
     Indication: MENTAL DISORDER
     Dosage: 10 MG, UNKNOWN
     Route: 065
     Dates: start: 20030926, end: 20050609
  2. ZYPREXA [Suspect]
     Dosage: 5 MG, UNK
     Dates: start: 20051230, end: 20060414
  3. ZYPREXA [Suspect]
     Dates: start: 20030101, end: 20060925
  4. LITHIUM CARBONATE [Concomitant]
     Dates: start: 20040407, end: 20050609
  5. LITHIUM CARBONATE [Concomitant]
     Dates: start: 20051230, end: 20060313

REACTIONS (4)
  - DIABETES MELLITUS [None]
  - DIABETIC COMPLICATION [None]
  - RENAL FAILURE [None]
  - VISION BLURRED [None]
